FAERS Safety Report 20517262 (Version 1)
Quarter: 2022Q1

REPORT INFORMATION
  Report Type: Spontaneous
  Country: US (occurrence: None)
  Receive Date: 20220224
  Receipt Date: 20220224
  Transmission Date: 20220424
  Serious: Yes (Life-Threatening, Hospitalization)
  Sender: FDA-Public Use
  Company Number: None

PATIENT
  Age: 40 Year
  Sex: Male

DRUGS (2)
  1. METHADONE [Suspect]
     Active Substance: METHADONE HYDROCHLORIDE
     Indication: Drug use disorder
     Dosage: FREQUENCY : DAILY;?
     Route: 048
     Dates: start: 20220113
  2. OXYCODONE HYDROCHLORIDE [Suspect]
     Active Substance: OXYCODONE HYDROCHLORIDE
     Indication: Pain
     Dosage: OTHER FREQUENCY : QID;?
     Route: 048
     Dates: start: 20170419, end: 20220113

REACTIONS (5)
  - Somnolence [None]
  - Miosis [None]
  - Cardio-respiratory arrest [None]
  - Hyperhidrosis [None]
  - Respiratory depression [None]

NARRATIVE: CASE EVENT DATE: 20220113
